FAERS Safety Report 6768133-2 (Version None)
Quarter: 2010Q2

REPORT INFORMATION
  Report Type: 
  Country: None (occurrence: None)
  Receive Date: 20100614
  Receipt Date: 20100607
  Transmission Date: 20101027
  Serious: Yes (Other)
  Sender: FDA-Public Use
  Company Number: CA-ASTRAZENECA-2010SE26925

PATIENT
  Age: 60 Year
  Sex: Male
  Weight: 81.6 kg

DRUGS (3)
  1. CRESTOR [Suspect]
     Route: 048
  2. ATACAND [Concomitant]
     Route: 048
  3. ATACAND HCT [Concomitant]
     Route: 048

REACTIONS (3)
  - ASTHENIA [None]
  - MYALGIA [None]
  - PAIN [None]
